FAERS Safety Report 4909329-1 (Version None)
Quarter: 2006Q1

REPORT INFORMATION
  Report Type: 
  Country: None (occurrence: None)
  Receive Date: 20060213
  Receipt Date: 20060203
  Transmission Date: 20060701
  Serious: Yes (Hospitalization)
  Sender: FDA-Public Use
  Company Number: US-GLAXOSMITHKLINE-A0592733A

PATIENT
  Age: 23 Year
  Sex: Female

DRUGS (4)
  1. PAXIL [Suspect]
     Indication: GENERALISED ANXIETY DISORDER
     Route: 048
     Dates: start: 19980101
  2. INHALERS [Concomitant]
  3. VICODIN [Concomitant]
  4. DARVOCET [Concomitant]

REACTIONS (9)
  - CIRCULATORY COLLAPSE [None]
  - DEPRESSION [None]
  - DIZZINESS [None]
  - LOSS OF CONSCIOUSNESS [None]
  - OVERDOSE [None]
  - SYNCOPE [None]
  - SYNCOPE VASOVAGAL [None]
  - TREMOR [None]
  - WEIGHT INCREASED [None]
